FAERS Safety Report 10073674 (Version 1)
Quarter: 2014Q2

REPORT INFORMATION
  Report Type: Spontaneous
  Country: AU (occurrence: AU)
  Receive Date: 20140411
  Receipt Date: 20140411
  Transmission Date: 20141212
  Serious: Yes (Other)
  Sender: FDA-Public Use
  Company Number: AU-WATSON-2014-07311

PATIENT
  Age: 40 Year
  Sex: Female

DRUGS (4)
  1. DEXTROAMPHETAMINE SAC/SLF, AMPHETAMINE ASP/SLF (MIXED SALTS)(WATSON) [Suspect]
     Indication: DRUG ABUSE
     Dosage: UNK, DAILY
     Route: 042
  2. DEXTROAMPHETAMINE SAC/SLF, AMPHETAMINE ASP/SLF (MIXED SALTS)(WATSON) [Suspect]
     Dosage: ONCE OR TWICE PER WEEK
     Route: 042
  3. IRON [Concomitant]
     Indication: ANAEMIA
     Dosage: UNK
     Route: 051
  4. BETAMETHASONE [Concomitant]
     Indication: MATERNAL THERAPY TO ENHANCE FOETAL LUNG MATURITY
     Dosage: UNK
     Route: 065

REACTIONS (5)
  - Premature separation of placenta [Unknown]
  - Placenta praevia [Not Recovered/Not Resolved]
  - Anaemia [Unknown]
  - Poor dental condition [Unknown]
  - Skin lesion [Unknown]
